FAERS Safety Report 6484601-5 (Version None)
Quarter: 2009Q4

REPORT INFORMATION
  Report Type: 
  Country: None (occurrence: None)
  Receive Date: 20091209
  Receipt Date: 20090529
  Transmission Date: 20100525
  Serious: No
  Sender: FDA-Public Use
  Company Number: US-AMGEN-KDL349394

PATIENT
  Sex: Male

DRUGS (2)
  1. ENBREL [Suspect]
     Indication: PSORIASIS
     Route: 058
     Dates: start: 20090129
  2. CORTICOSTEROIDS [Concomitant]
     Route: 061

REACTIONS (2)
  - HAEMORRHAGIC DIATHESIS [None]
  - SKIN ATROPHY [None]
